FAERS Safety Report 6297879-8 (Version None)
Quarter: 2009Q3

REPORT INFORMATION
  Report Type: 
  Country: None (occurrence: None)
  Receive Date: 20090805
  Receipt Date: 20090728
  Transmission Date: 20100115
  Serious: Yes (Hospitalization)
  Sender: FDA-Public Use
  Company Number: US-ELI_LILLY_AND_COMPANY-US200908000489

PATIENT
  Sex: Female
  Weight: 72.562 kg

DRUGS (8)
  1. BYETTA [Suspect]
     Indication: TYPE 2 DIABETES MELLITUS
     Dosage: 5 UG, 2/D
     Route: 058
     Dates: start: 20070101
  2. BYETTA [Suspect]
     Dosage: 10 UG, 2/D
     Route: 058
     Dates: end: 20090601
  3. METFORMIN [Concomitant]
     Indication: TYPE 2 DIABETES MELLITUS
     Dosage: 1000 MG, 2/D
     Route: 048
  4. VITAMIN D [Concomitant]
     Dosage: 1000 MG, DAILY (1/D)
     Route: 048
  5. BENICAR [Concomitant]
     Dosage: 20 MG, QOD
     Route: 048
  6. BIOTIN [Concomitant]
     Dosage: UNK, DAILY (1/D)
  7. MULTI-VITAMIN [Concomitant]
     Dosage: UNK, DAILY (1/D)
  8. VITAMIN B COMPLEX CAP [Concomitant]
     Dosage: UNK, DAILY (1/D)
     Route: 048

REACTIONS (5)
  - BREAST CALCIFICATIONS [None]
  - BREAST DISCHARGE [None]
  - BREAST PAIN [None]
  - HAEMORRHAGE [None]
  - MOBILITY DECREASED [None]
